FAERS Safety Report 5418371-6 (Version None)
Quarter: 2007Q3

REPORT INFORMATION
  Report Type: 
  Country: None (occurrence: None)
  Receive Date: 20070817
  Receipt Date: 20070808
  Transmission Date: 20080115
  Serious: Yes (Hospitalization)
  Sender: FDA-Public Use
  Company Number: FR-JNJFOC-20070604677

PATIENT
  Age: 39 Year
  Sex: Male

DRUGS (1)
  1. ACETAMINOPHEN AND TRAMADOL HCL [Suspect]
     Indication: ARTHRALGIA
     Route: 048
     Dates: start: 20070506, end: 20070509

REACTIONS (1)
  - HENOCH-SCHONLEIN PURPURA [None]
